FAERS Safety Report 4355624-7 (Version None)
Quarter: 2004Q2

REPORT INFORMATION
  Report Type: 
  Country: None (occurrence: None)
  Receive Date: 20040505
  Receipt Date: 20040419
  Transmission Date: 20050107
  Serious: Yes (Hospitalization)
  Sender: FDA-Public Use
  Company Number: DSA_24259_2004

PATIENT
  Age: 30 Year
  Sex: Male

DRUGS (2)
  1. LORAZEPAM [Suspect]
     Dates: start: 20040416, end: 20040416
  2. GEODON [Suspect]
     Dates: start: 20040416, end: 20040416

REACTIONS (8)
  - APTYALISM [None]
  - CONFUSIONAL STATE [None]
  - CONVULSION [None]
  - FALL [None]
  - INTENTIONAL OVERDOSE [None]
  - MYDRIASIS [None]
  - POLYTRAUMATISM [None]
  - RHABDOMYOLYSIS [None]
